FAERS Safety Report 20095790 (Version 1)
Quarter: 2021Q4

REPORT INFORMATION
  Report Type: Spontaneous
  Country: US (occurrence: None)
  Receive Date: 20211119
  Receipt Date: 20211119
  Transmission Date: 20220304
  Serious: Yes (Death, Life-Threatening, Hospitalization, Other)
  Sender: FDA-Public Use
  Company Number: None

PATIENT
  Age: 83 Year
  Sex: Male
  Weight: 71.6 kg

DRUGS (22)
  1. OLUMIANT [Suspect]
     Active Substance: BARICITINIB
     Indication: COVID-19
     Dosage: FREQUENCY : DAILY;?
     Route: 048
     Dates: start: 20210903, end: 20210916
  2. REMDESIVIR [Concomitant]
     Active Substance: REMDESIVIR
     Dates: start: 20210902, end: 20210906
  3. ALBUTEROL [Concomitant]
     Active Substance: ALBUTEROL
     Dates: start: 20210826, end: 20210929
  4. ASPIRIN [Concomitant]
     Active Substance: ASPIRIN
     Dates: start: 20210826, end: 20210909
  5. DEXAMETHASONE [Concomitant]
     Active Substance: DEXAMETHASONE
     Dates: start: 20210903, end: 20210909
  6. FAMOTIDINE [Concomitant]
     Active Substance: FAMOTIDINE
     Dates: start: 20210826, end: 20210914
  7. MUCINEX [Concomitant]
     Active Substance: GUAIFENESIN
     Dates: start: 20210826, end: 20210929
  8. HEPARIN [Concomitant]
     Active Substance: HEPARIN SODIUM
     Dates: start: 20210826, end: 20210914
  9. BISACODYL [Concomitant]
     Active Substance: BISACODYL
     Dates: start: 20210912, end: 20210912
  10. FLUCONAZOLE [Concomitant]
     Active Substance: FLUCONAZOLE
     Dates: start: 20210907, end: 20210911
  11. FUROSEMIDE [Concomitant]
     Active Substance: FUROSEMIDE
     Dates: start: 20210912, end: 20210912
  12. MAGNESIUM CITRATE [Concomitant]
     Active Substance: MAGNESIUM CITRATE
     Dates: start: 20210911, end: 20210911
  13. METHYLPREDNISOLONE [Concomitant]
     Active Substance: METHYLPREDNISOLONE
     Dates: start: 20210910, end: 20210910
  14. SMOG enema [Concomitant]
     Dates: start: 20210912, end: 20210912
  15. acetylcysteine (MUCOMYST) 200 mg/mL (20 %) oral/neb solution 800 mg [Concomitant]
     Dates: start: 20210908, end: 20210915
  16. COLCHICINE [Concomitant]
     Active Substance: COLCHICINE
     Dates: start: 20210826, end: 20210903
  17. KETOROLAC [Concomitant]
     Active Substance: KETOROLAC TROMETHAMINE
     Dates: start: 20210916, end: 20210918
  18. LEVOFLOXACIN [Concomitant]
     Active Substance: LEVOFLOXACIN
     Dates: start: 20210910, end: 20210911
  19. MAGNESIUM HYDROXIDE [Concomitant]
     Active Substance: MAGNESIUM HYDROXIDE
     Dates: start: 20210828, end: 20210930
  20. MEGASTROL [Concomitant]
     Dates: start: 20210916, end: 20210929
  21. MEROPENEM [Concomitant]
     Active Substance: MEROPENEM
     Dates: start: 20210911, end: 20210919
  22. MINOCYCLINE [Concomitant]
     Active Substance: MINOCYCLINE HYDROCHLORIDE
     Dates: start: 20210911, end: 20210927

REACTIONS (2)
  - Gastrointestinal wall thickening [None]
  - Diverticular perforation [None]

NARRATIVE: CASE EVENT DATE: 20210930
